FAERS Safety Report 9665359 (Version 2)
Quarter: 2013Q4

REPORT INFORMATION
  Report Type: Spontaneous
  Country: FI (occurrence: FI)
  Receive Date: 20131102
  Receipt Date: 20131102
  Transmission Date: 20140711
  Serious: Yes (Hospitalization, Other)
  Sender: FDA-Public Use
  Company Number: FI-009507513-1011FIN00015

PATIENT
  Age: 79 Year
  Sex: Female

DRUGS (2)
  1. ALENDRONATE SODIUM [Suspect]
     Indication: OSTEOPOROSIS
     Dosage: 70 MG, QW
     Route: 048
     Dates: start: 2008
  2. ALENDRONATE SODIUM [Suspect]
     Dosage: 10 MG, QD
     Route: 048
     Dates: start: 1998, end: 2008

REACTIONS (1)
  - Femur fracture [Unknown]
